FAERS Safety Report 6786222-3 (Version None)
Quarter: 2010Q2

REPORT INFORMATION
  Report Type: 
  Country: None (occurrence: None)
  Receive Date: 20100623
  Receipt Date: 20100616
  Transmission Date: 20101027
  Serious: Yes (Other)
  Sender: FDA-Public Use
  Company Number: US-JNJCH-2010014554

PATIENT
  Sex: Male

DRUGS (1)
  1. BENADRYL [Suspect]
     Indication: DRUG USE FOR UNKNOWN INDICATION
     Dosage: TEXT:50 PILLS ONE TIME
     Route: 048

REACTIONS (1)
  - OVERDOSE [None]
